FAERS Safety Report 8253982-4 (Version None)
Quarter: 2012Q2

REPORT INFORMATION
  Report Type: 
  Country: None (occurrence: None)
  Receive Date: 20120402
  Receipt Date: 20120319
  Transmission Date: 20120825
  Serious: Yes (Other)
  Sender: FDA-Public Use
  Company Number: US-AMGEN-USASP2012010869

PATIENT
  Age: 64 Year
  Sex: Female

DRUGS (4)
  1. SANDOSTATIN LAR [Concomitant]
     Indication: CARCINOID SYNDROME
     Dosage: UNK
     Dates: start: 20040101
  2. ENBREL [Suspect]
     Indication: RHEUMATOID ARTHRITIS
     Dosage: 50 MG, QWK
     Dates: start: 20110725
  3. METHOTREXATE [Concomitant]
     Dosage: UNK
  4. PLAQUENIL [Concomitant]
     Dosage: UNK

REACTIONS (7)
  - RASH [None]
  - INJECTION SITE SWELLING [None]
  - SWELLING [None]
  - ANAPHYLACTIC REACTION [None]
  - PRURITUS [None]
  - INJECTION SITE ERYTHEMA [None]
  - URTICARIA [None]
